FAERS Safety Report 9922769 (Version 2)
Quarter: 2014Q2

REPORT INFORMATION
  Report Type: Spontaneous
  Country: US (occurrence: US)
  Receive Date: 20140225
  Receipt Date: 20140624
  Transmission Date: 20141212
  Serious: Yes (Other)
  Sender: FDA-Public Use
  Company Number: US-009507513-1402USA011254

PATIENT
  Sex: Female
  Weight: 65.76 kg

DRUGS (3)
  1. OXYTROL FOR WOMEN [Suspect]
     Indication: PRODUCT USED FOR UNKNOWN INDICATION
     Dosage: UNK, Q4D
     Route: 062
     Dates: start: 201311
  2. OXYTROL FOR WOMEN [Suspect]
     Dosage: UNK, Q4D
     Route: 062
  3. IRON (UNSPECIFIED) [Concomitant]
     Indication: RENAL DISORDER
     Dosage: UNK, UNKNOWN
     Route: 042

REACTIONS (3)
  - Macular degeneration [Unknown]
  - Drug effect decreased [Unknown]
  - Rash [Unknown]
